FAERS Safety Report 9757342 (Version 2)
Quarter: 2014Q1

REPORT INFORMATION
  Report Type: Spontaneous
  Country: US (occurrence: US)
  Receive Date: 20131214
  Receipt Date: 20140123
  Transmission Date: 20141002
  Serious: No
  Sender: FDA-Public Use
  Company Number: US-B.I. PHARMACEUTICALS,INC./RIDGEFIELD-2013-BI-40161BP

PATIENT
  Age: 68 Year
  Sex: Male
  Weight: 132 kg

DRUGS (3)
  1. COMBIVENT [Suspect]
     Indication: DYSPNOEA
     Dosage: STRENGTH: 20 MCG / 100 MCG; DAILY DOSE: 80 MCG/400 MCG
     Route: 055
     Dates: start: 20131125
  2. COMBIVENT [Suspect]
     Indication: OBSTRUCTION
  3. FINESTARIDE [Concomitant]
     Indication: PROSTATOMEGALY
     Dosage: 1 MG
     Route: 048
     Dates: start: 2009

REACTIONS (3)
  - Cough [Recovered/Resolved]
  - Dyspnoea exertional [Not Recovered/Not Resolved]
  - Off label use [Unknown]
